FAERS Safety Report 21053747 (Version 1)
Quarter: 2022Q3

REPORT INFORMATION
  Report Type: Spontaneous
  Country: CN (occurrence: CN)
  Receive Date: 20220707
  Receipt Date: 20220707
  Transmission Date: 20221027
  Serious: Yes (Life-Threatening, Hospitalization, Other)
  Sender: FDA-Public Use
  Company Number: CN-009507513-2207CHN001020

PATIENT
  Age: 72 Year
  Sex: Male
  Weight: 60 kg

DRUGS (2)
  1. INVANZ [Suspect]
     Active Substance: ERTAPENEM SODIUM
     Indication: Anti-infective therapy
     Dosage: 1.0 G, FREQUENCY: QD
     Route: 041
     Dates: start: 20220614, end: 20220621
  2. INNO.N 0.9% SODIUM CHLORIDE [Concomitant]
     Indication: Medication dilution
     Dosage: 100 ML, FREQUENCY: QD
     Route: 041
     Dates: start: 20220614, end: 20220621

REACTIONS (1)
  - Epilepsy [Recovering/Resolving]

NARRATIVE: CASE EVENT DATE: 20220621
